FAERS Safety Report 17549596 (Version 2)
Quarter: 2020Q1

REPORT INFORMATION
  Report Type: Spontaneous
  Country: US (occurrence: US)
  Receive Date: 20200317
  Receipt Date: 20200331
  Transmission Date: 20200409
  Serious: No
  Sender: FDA-Public Use
  Company Number: US-VERTEX PHARMACEUTICALS-2020-005204

PATIENT
  Sex: Male

DRUGS (1)
  1. TRIKAFTA [Suspect]
     Active Substance: ELEXACAFTOR\IVACAFTOR\TEZACAFTOR
     Indication: CYSTIC FIBROSIS
     Dosage: 100MG/ 50MG/ 75MG (2 TABLETS) AM AND 150MG (1 TABLET) IN PM
     Route: 048
     Dates: start: 20200229

REACTIONS (3)
  - Dizziness [Unknown]
  - Hepatic pain [Unknown]
  - Cough [Unknown]

NARRATIVE: CASE EVENT DATE: 2020
